FAERS Safety Report 11175117 (Version 1)
Quarter: 2015Q2

REPORT INFORMATION
  Report Type: Spontaneous
  Country: FI (occurrence: FI)
  Receive Date: 20150609
  Receipt Date: 20150609
  Transmission Date: 20150821
  Serious: Yes (Hospitalization)
  Sender: FDA-Public Use
  Company Number: FI-ASTRAZENECA-2015SE54059

PATIENT
  Age: 62 Year
  Sex: Male

DRUGS (17)
  1. SOMAC [Concomitant]
     Active Substance: PANTOPRAZOLE SODIUM
     Route: 048
  2. KALEORID [Concomitant]
     Active Substance: POTASSIUM CHLORIDE
     Route: 048
  3. PLAVIX [Concomitant]
     Active Substance: CLOPIDOGREL BISULFATE
     Route: 048
  4. NOVORAPID [Concomitant]
     Active Substance: INSULIN ASPART
     Route: 058
  5. LANTUS [Concomitant]
     Active Substance: INSULIN GLARGINE
     Route: 058
  6. LYRICA [Concomitant]
     Active Substance: PREGABALIN
     Route: 048
  7. COZAAR COMP [Concomitant]
     Active Substance: HYDROCHLOROTHIAZIDE\LOSARTAN POTASSIUM
     Dosage: 50/12.5 MG, EVERY DAY
     Route: 048
  8. METOHEXAL [Concomitant]
     Active Substance: METOPROLOL SUCCINATE
     Route: 048
  9. EZETROL [Concomitant]
     Active Substance: EZETIMIBE
     Route: 048
  10. CRESTOR [Suspect]
     Active Substance: ROSUVASTATIN CALCIUM
     Indication: HYPERCHOLESTEROLAEMIA
     Route: 048
     Dates: end: 20150513
  11. NORSPAN [Interacting]
     Active Substance: BUPRENORPHINE
     Indication: PAIN
     Route: 062
     Dates: start: 20150506, end: 20150513
  12. ISANGINA [Concomitant]
     Route: 048
  13. PLENDIL [Concomitant]
     Active Substance: FELODIPINE
     Route: 048
  14. PRIMASPAN [Concomitant]
     Route: 048
  15. TRADJENTA [Concomitant]
     Active Substance: LINAGLIPTIN
     Route: 048
  16. OMNIC [Concomitant]
     Active Substance: TAMSULOSIN HYDROCHLORIDE
     Route: 048
  17. FINASTERID [Concomitant]
     Route: 048

REACTIONS (2)
  - Drug interaction [Unknown]
  - Rhabdomyolysis [Recovered/Resolved]

NARRATIVE: CASE EVENT DATE: 20150506
